FAERS Safety Report 17354863 (Version 2)
Quarter: 2020Q1

REPORT INFORMATION
  Report Type: Spontaneous
  Country: US (occurrence: US)
  Receive Date: 20200131
  Receipt Date: 20200207
  Transmission Date: 20200409
  Serious: No
  Sender: FDA-Public Use
  Company Number: US-PFIZER INC-2020039421

PATIENT
  Age: 4 Year
  Sex: Female
  Weight: 13.61 kg

DRUGS (1)
  1. CHILDRENS ADVIL [Suspect]
     Active Substance: IBUPROFEN
     Indication: TOOTHACHE
     Dosage: 5 ML, UNK (SHE GAVE 5 ML FOR THE FIRST DOSE)

REACTIONS (1)
  - Therapeutic product effect decreased [Unknown]
